FAERS Safety Report 6689170-2 (Version None)
Quarter: 2010Q2

REPORT INFORMATION
  Report Type: 
  Country: None (occurrence: None)
  Receive Date: 20100415
  Receipt Date: 20100412
  Transmission Date: 20101027
  Serious: Yes (Hospitalization, Other)
  Sender: FDA-Public Use
  Company Number: 2008-187499-NL

PATIENT
  Age: 23 Year
  Sex: Female
  Weight: 86.1834 kg

DRUGS (4)
  1. NUVARING [Suspect]
     Indication: CONTRACEPTION
     Dosage: 1 DF
     Dates: start: 20050131, end: 20050809
  2. NUVARING [Suspect]
     Indication: MENORRHAGIA
     Dosage: 1 DF
     Dates: start: 20050131, end: 20050809
  3. PRILOSEC [Concomitant]
  4. DOXYCYCLINE [Concomitant]

REACTIONS (23)
  - ABORTION INDUCED [None]
  - ABORTION SPONTANEOUS [None]
  - ANKLE FRACTURE [None]
  - BONE ATROPHY [None]
  - BREAST MASS [None]
  - CHEST PAIN [None]
  - DEEP VEIN THROMBOSIS [None]
  - DEPRESSION [None]
  - DYSMENORRHOEA [None]
  - FURUNCLE [None]
  - HOMANS' SIGN [None]
  - LIGAMENT RUPTURE [None]
  - LOBAR PNEUMONIA [None]
  - MENORRHAGIA [None]
  - MENSTRUATION IRREGULAR [None]
  - MOBILITY DECREASED [None]
  - MUSCLE SPASMS [None]
  - MUSCULOSKELETAL STIFFNESS [None]
  - OSTEOMALACIA [None]
  - SUICIDAL IDEATION [None]
  - SWELLING [None]
  - THYROID MASS [None]
  - VAGINITIS BACTERIAL [None]
